FAERS Safety Report 17421146 (Version 1)
Quarter: 2020Q1

REPORT INFORMATION
  Report Type: Spontaneous
  Country: SE (occurrence: SE)
  Receive Date: 20200214
  Receipt Date: 20200214
  Transmission Date: 20200409
  Serious: Yes (Hospitalization)
  Sender: FDA-Public Use
  Company Number: NVSC2020SE039363

PATIENT
  Age: 32 Year
  Sex: Female

DRUGS (2)
  1. BISOPROLOL [Suspect]
     Active Substance: BISOPROLOL
     Indication: PRODUCT USED FOR UNKNOWN INDICATION
     Dosage: UNK (30 TO 50X5 MG)
     Route: 048
     Dates: start: 20190723, end: 20190723
  2. LERGIGAN (PROMETHAZINE HYDROCHLORIDE) [Suspect]
     Active Substance: PROMETHAZINE HYDROCHLORIDE
     Indication: PRODUCT USED FOR UNKNOWN INDICATION
     Dosage: UNK (70 TO 100X25 MG)
     Route: 048
     Dates: start: 20190723, end: 20190723

REACTIONS (6)
  - Loss of consciousness [Unknown]
  - Intentional self-injury [Unknown]
  - Akathisia [Unknown]
  - Hallucination [Unknown]
  - Confusional state [Unknown]
  - Intentional overdose [Unknown]

NARRATIVE: CASE EVENT DATE: 20190723
